FAERS Safety Report 8783256 (Version 1)
Quarter: 2012Q4

REPORT INFORMATION
  Report Type: 
  Country: US (occurrence: US)
  Receive Date: 20120913
  Receipt Date: 20120913
  Transmission Date: 20130627
  Serious: Yes (Other)
  Sender: FDA-Public Use
  Company Number: US-AMGEN-USASP2012057486

PATIENT
  Age: 56 Year
  Sex: Female

DRUGS (1)
  1. ENBREL [Suspect]
     Indication: RHEUMATOID ARTHRITIS
     Dosage: 50 mg PFS weekly, 25 mg PFS 3 days later weekly
     Route: 058
     Dates: start: 20030401

REACTIONS (13)
  - Mania [Recovered/Resolved]
  - Eye swelling [Recovered/Resolved]
  - Physical assault [Recovered/Resolved]
  - Arthropod bite [Recovering/Resolving]
  - Arthralgia [Recovered/Resolved]
  - Eye infection [Recovered/Resolved]
  - Bursitis [Recovered/Resolved]
  - Mobility decreased [Recovered/Resolved]
  - Rash [Unknown]
  - Hot flush [Not Recovered/Not Resolved]
  - Deformity [Not Recovered/Not Resolved]
  - Documented hypersensitivity to administered drug [Recovered/Resolved]
  - Pneumonia [Recovered/Resolved]
